FAERS Safety Report 8461337-2 (Version None)
Quarter: 2012Q2

REPORT INFORMATION
  Report Type: 
  Country: None (occurrence: None)
  Receive Date: 20120625
  Receipt Date: 20120613
  Transmission Date: 20120825
  Serious: Yes (Other)
  Sender: FDA-Public Use
  Company Number: SE-JNJFOC-20120607024

PATIENT
  Age: 26 Year
  Sex: Female

DRUGS (5)
  1. HUMIRA [Suspect]
     Dosage: WEEK 0 AND 2
     Route: 050
     Dates: start: 20120221
  2. CALCIUM CARBONATE / CHOLECALCIFEROL [Concomitant]
     Dosage: DOSE/FREQUENCY: 1X2
     Route: 065
     Dates: start: 20120218
  3. PURINETHOL [Suspect]
     Indication: PRODUCT USED FOR UNKNOWN INDICATION
     Route: 048
     Dates: start: 20120221
  4. REMICADE [Suspect]
     Indication: COLITIS ULCERATIVE
     Dosage: AS NECESSARY; 100 MG
     Route: 042
     Dates: start: 20111014, end: 20120112
  5. HUMIRA [Suspect]
     Indication: COLITIS ULCERATIVE
     Route: 050
     Dates: end: 20120306

REACTIONS (2)
  - SACROILIITIS [None]
  - PUSTULAR PSORIASIS [None]
